FAERS Safety Report 6388005-5 (Version None)
Quarter: 2009Q3

REPORT INFORMATION
  Report Type: 
  Country: None (occurrence: None)
  Receive Date: 20090930
  Receipt Date: 20090917
  Transmission Date: 20100115
  Serious: Yes (Hospitalization, Other)
  Sender: FDA-Public Use
  Company Number: ENT 2009-0134

PATIENT
  Age: 58 Month

DRUGS (6)
  1. COMTAN [Suspect]
     Indication: DRUG EFFECT DECREASED
     Dosage: ORAL
     Route: 048
     Dates: start: 20070101
  2. TRIHEXYPHENIDYL HCL [Concomitant]
  3. TOFRANIL [Concomitant]
  4. PAROXETINE HCL [Concomitant]
  5. CABERGOLINE [Concomitant]
  6. PRAMIPEXOLE DIHYDROCHLORIDE [Concomitant]

REACTIONS (4)
  - CONDITION AGGRAVATED [None]
  - DYSKINESIA [None]
  - DYSPHAGIA [None]
  - POSTURE ABNORMAL [None]
